FAERS Safety Report 6021026-0 (Version None)
Quarter: 2008Q4

REPORT INFORMATION
  Report Type: 
  Country: None (occurrence: None)
  Receive Date: 20081229
  Receipt Date: 20081219
  Transmission Date: 20090506
  Serious: Yes (Hospitalization)
  Sender: FDA-Public Use
  Company Number: US-BIOGENIDEC-2005BI013824

PATIENT
  Age: 52 Year
  Sex: Male
  Weight: 106 kg

DRUGS (4)
  1. AVONEX [Suspect]
     Indication: MULTIPLE SCLEROSIS
     Route: 030
     Dates: start: 19970101
  2. AVONEX [Suspect]
     Route: 030
  3. AVONEX [Suspect]
     Route: 030
     Dates: end: 20041201
  4. AVONEX [Suspect]
     Route: 030
     Dates: start: 20041222

REACTIONS (3)
  - GASTRIC CANCER [None]
  - HIATUS HERNIA [None]
  - OESOPHAGEAL CARCINOMA [None]
